FAERS Safety Report 7450680-1 (Version None)
Quarter: 2011Q2

REPORT INFORMATION
  Report Type: 
  Country: None (occurrence: None)
  Receive Date: 20110502
  Receipt Date: 20110428
  Transmission Date: 20111010
  Serious: Yes (Other)
  Sender: FDA-Public Use
  Company Number: GB-PFIZER INC-2011091691

PATIENT
  Age: 62 Year
  Sex: Male

DRUGS (2)
  1. NASONEX [Concomitant]
     Indication: RHINITIS PERENNIAL
     Dosage: 4 DF, 2X/DAY
     Route: 045
     Dates: start: 20090219
  2. XALATAN [Suspect]
     Indication: GLAUCOMA
     Dosage: 2 DF, 1X/DAY
     Route: 047
     Dates: start: 20100723

REACTIONS (1)
  - ERYTHEMA [None]
